FAERS Safety Report 6869748-3 (Version None)
Quarter: 2010Q3

REPORT INFORMATION
  Report Type: 
  Country: None (occurrence: None)
  Receive Date: 20100722
  Receipt Date: 20080926
  Transmission Date: 20110219
  Serious: No
  Sender: FDA-Public Use
  Company Number: US-PFIZER INC-2008071252

PATIENT
  Sex: Female
  Weight: 63.636 kg

DRUGS (2)
  1. CHANTIX [Suspect]
     Indication: SMOKING CESSATION THERAPY
     Dates: start: 20080817, end: 20080822
  2. VITAMINS [Concomitant]

REACTIONS (3)
  - DRUG DOSE OMISSION [None]
  - MEDICATION ERROR [None]
  - MEMORY IMPAIRMENT [None]
